FAERS Safety Report 6210195-5 (Version None)
Quarter: 2009Q2

REPORT INFORMATION
  Report Type: 
  Country: None (occurrence: None)
  Receive Date: 20090529
  Receipt Date: 20090529
  Transmission Date: 20091009
  Serious: Yes (Hospitalization, Other)
  Sender: FDA-Public Use
  Company Number: None

PATIENT
  Age: 23 Year
  Sex: Male

DRUGS (1)
  1. HALDOL [Suspect]
     Dosage: 5 MG PO TID
     Route: 048
     Dates: start: 20090106

REACTIONS (1)
  - DYSTONIA [None]
